FAERS Safety Report 21114633 (Version 1)
Quarter: 2022Q3

REPORT INFORMATION
  Report Type: Spontaneous
  Country: CH (occurrence: CH)
  Receive Date: 20220721
  Receipt Date: 20220721
  Transmission Date: 20221027
  Serious: Yes (Other)
  Sender: FDA-Public Use
  Company Number: None

PATIENT
  Age: 26 Year
  Sex: Male
  Weight: 70 kg

DRUGS (5)
  1. ACTEMRA [Suspect]
     Active Substance: TOCILIZUMAB
     Indication: Myelin oligodendrocyte glycoprotein antibody-associated disease
     Dosage: ACTEMRA (TOCILIZUMAB) INITIALLY 8 MG/KG BODY WEIGHT (WITH APPROX. 70 KG PROBABLY 560 MG) PER MONTH
     Route: 042
     Dates: start: 2021, end: 202202
  2. ACTEMRA [Suspect]
     Active Substance: TOCILIZUMAB
     Dosage: ACTEMRA(TOCILIZUMAB) INITIALLY 8 MG/KG BODY WEIGHT (WITH APPROX. 70 KG PROBABLY 560 MG) PER MONTH
     Route: 042
     Dates: start: 202202
  3. LAMICTAL [Concomitant]
     Active Substance: LAMOTRIGINE
     Dosage: LAMICTAL (LAMOTRIGIN) 200 MG 2X/TAG
     Route: 048
  4. FYCOMPA [Concomitant]
     Active Substance: PERAMPANEL
     Dosage: FYCOMPA (PERAMPANEL) 4 MG 1X/TAG
     Route: 048
  5. TEMESTA [Concomitant]
     Dosage: TEMESTA (LORAZEPAM) BEI BEDARF 1 MG ; AS NECESSARY
     Route: 048

REACTIONS (2)
  - Diarrhoea [Not Recovered/Not Resolved]
  - Hepatic enzyme increased [Unknown]

NARRATIVE: CASE EVENT DATE: 20210101
